FAERS Safety Report 7490674-3 (Version None)
Quarter: 2011Q2

REPORT INFORMATION
  Report Type: 
  Country: None (occurrence: None)
  Receive Date: 20110517
  Receipt Date: 20110517
  Transmission Date: 20111010
  Serious: No
  Sender: FDA-Public Use
  Company Number: None

PATIENT
  Age: 62 Year
  Sex: Female

DRUGS (1)
  1. VELCADE [Suspect]
     Indication: MULTIPLE MYELOMA

REACTIONS (1)
  - RHINORRHOEA [None]
